FAERS Safety Report 13928804 (Version 1)
Quarter: 2017Q3

REPORT INFORMATION
  Report Type: Spontaneous
  Country: US (occurrence: None)
  Receive Date: 20170901
  Receipt Date: 20170901
  Transmission Date: 20171127
  Serious: No
  Sender: FDA-Public Use
  Company Number: None

PATIENT
  Age: 55 Year
  Sex: Female

DRUGS (1)
  1. VOTRIENT [Suspect]
     Active Substance: PAZOPANIB HYDROCHLORIDE

REACTIONS (5)
  - Paraesthesia [None]
  - Blindness transient [None]
  - Eyelid disorder [None]
  - Vision blurred [None]
  - Hypoaesthesia [None]

NARRATIVE: CASE EVENT DATE: 20170831
